FAERS Safety Report 7668378-3 (Version None)
Quarter: 2011Q3

REPORT INFORMATION
  Report Type: 
  Country: None (occurrence: None)
  Receive Date: 20110808
  Receipt Date: 20110801
  Transmission Date: 20111222
  Serious: Yes (Hospitalization)
  Sender: FDA-Public Use
  Company Number: NZ-B.I. PHARMACEUTICALS,INC./RIDGEFIELD-2011-AU-00465AU

PATIENT
  Age: 82 Year
  Sex: Male
  Weight: 50 kg

DRUGS (2)
  1. WARFARIN SODIUM [Suspect]
     Dates: end: 20110707
  2. PRADAXA [Suspect]
     Dosage: 220 MG
     Dates: start: 20110707

REACTIONS (4)
  - CHEST PAIN [None]
  - DYSPNOEA [None]
  - LUNG INFILTRATION [None]
  - RECTAL HAEMORRHAGE [None]
